FAERS Safety Report 11713751 (Version 4)
Quarter: 2016Q1

REPORT INFORMATION
  Report Type: Spontaneous
  Country: CZ (occurrence: CZ)
  Receive Date: 20151109
  Receipt Date: 20160119
  Transmission Date: 20160525
  Serious: Yes (Death, Hospitalization, Other)
  Sender: FDA-Public Use
  Company Number: CZ-SUN PHARMACEUTICAL INDUSTRIES LTD-2015R1-105742

PATIENT
  Age: 65 Year
  Sex: Female

DRUGS (5)
  1. MOXOGAMMA [Suspect]
     Active Substance: MOXONIDINE
     Indication: PRODUCT USED FOR UNKNOWN INDICATION
     Dosage: 50 TABLETS
     Route: 065
  2. TARKA [Suspect]
     Active Substance: TRANDOLAPRIL\VERAPAMIL HYDROCHLORIDE
     Indication: PRODUCT USED FOR UNKNOWN INDICATION
     Dosage: 42 TABLETS
     Route: 065
  3. ARTRODAR [Suspect]
     Active Substance: DIACEREIN
     Indication: PRODUCT USED FOR UNKNOWN INDICATION
     Dosage: 80 TABLETS
     Route: 065
  4. EBRANTIL RET [Suspect]
     Active Substance: URAPIDIL
     Indication: PRODUCT USED FOR UNKNOWN INDICATION
     Dosage: 250 TABLETS
     Route: 065
  5. TULIP [Suspect]
     Active Substance: ATORVASTATIN
     Indication: PRODUCT USED FOR UNKNOWN INDICATION
     Dosage: 80 TABLET
     Route: 065

REACTIONS (12)
  - Cardiomyopathy [Unknown]
  - Intentional overdose [Fatal]
  - Distributive shock [Fatal]
  - Intentional overdose [None]
  - Cardiogenic shock [Fatal]
  - Loss of consciousness [Unknown]
  - Drug abuse [Unknown]
  - Overdose [Unknown]
  - Completed suicide [Fatal]
  - Rhabdomyolysis [Unknown]
  - Acute kidney injury [Fatal]
  - Toxicity to various agents [Fatal]
